FAERS Safety Report 9491380 (Version 3)
Quarter: 2014Q1

REPORT INFORMATION
  Report Type: Spontaneous
  Country: FR (occurrence: FR)
  Receive Date: 20130830
  Receipt Date: 20140207
  Transmission Date: 20141002
  Serious: Yes (Hospitalization, Other)
  Sender: FDA-Public Use
  Company Number: FR-PFIZER INC-2013247586

PATIENT
  Age: 44 Year
  Sex: Female

DRUGS (6)
  1. RELPAX [Suspect]
     Dosage: UNK
     Route: 048
  2. EFFEXOR [Suspect]
     Dosage: UNK
     Route: 048
  3. AVLOCARDYL [Suspect]
     Dosage: UNK
  4. KETOPROFEN [Suspect]
     Indication: MIGRAINE
     Dosage: UNK, TWO DOSES THREE TIMES A WEEK
     Route: 048
  5. SANMIGRAN [Suspect]
     Indication: MIGRAINE
     Dosage: UNK
  6. EUPANTOL [Concomitant]
     Dosage: UNK

REACTIONS (7)
  - Gastric ulcer [Recovered/Resolved]
  - Anaemia [Recovered/Resolved]
  - Melaena [Recovered/Resolved]
  - Chest pain [Recovered/Resolved]
  - Dyspnoea [Recovered/Resolved]
  - Helicobacter gastritis [Unknown]
  - Gastritis atrophic [Unknown]
